FAERS Safety Report 5473668-9 (Version None)
Quarter: 2007Q4

REPORT INFORMATION
  Report Type: 
  Country: None (occurrence: None)
  Receive Date: 20071001
  Receipt Date: 20070924
  Transmission Date: 20080405
  Serious: No
  Sender: FDA-Public Use
  Company Number: US-BOEHRINGER INGELHEIM PHARMACEUTICALS, INC.-2007-BP-21546BP

PATIENT
  Sex: Female

DRUGS (5)
  1. ZANTAC 150 [Suspect]
     Indication: GASTROOESOPHAGEAL REFLUX DISEASE
     Route: 048
     Dates: start: 20070911, end: 20070912
  2. ZANTAC 150 [Suspect]
     Indication: DYSPEPSIA
  3. ZANTAC 150 [Suspect]
  4. TOPROL-XL [Concomitant]
     Indication: SUPRAVENTRICULAR TACHYCARDIA
  5. DIGITEK [Concomitant]
     Indication: SUPRAVENTRICULAR TACHYCARDIA

REACTIONS (1)
  - MIGRAINE [None]
